FAERS Safety Report 13514009 (Version 3)
Quarter: 2017Q2

REPORT INFORMATION
  Report Type: Spontaneous
  Country: US (occurrence: US)
  Receive Date: 20170504
  Receipt Date: 20170626
  Transmission Date: 20170830
  Serious: Yes (Other)
  Sender: FDA-Public Use
  Company Number: US-PFIZER INC-2017192247

PATIENT
  Age: 55 Year
  Sex: Female
  Weight: 72.56 kg

DRUGS (2)
  1. LYRICA [Suspect]
     Active Substance: PREGABALIN
     Indication: NEUROPATHY PERIPHERAL
     Dosage: 300 MG, 4X/DAY
     Route: 048
     Dates: start: 2010
  2. LYRICA [Suspect]
     Active Substance: PREGABALIN
     Dosage: 2400 MG, DAILY [TAKING 8 CAPSULES PER DAY OF LYRICA 300MG (2400MG PER DAY)]

REACTIONS (5)
  - Muscle strain [Unknown]
  - Overdose [Unknown]
  - Drug dose omission [Unknown]
  - Pain [Unknown]
  - Withdrawal syndrome [Unknown]

NARRATIVE: CASE EVENT DATE: 2010
